FAERS Safety Report 9454029 (Version 1)
Quarter: 2013Q3

REPORT INFORMATION
  Report Type: Spontaneous
  Country: FR (occurrence: FR)
  Receive Date: 20130812
  Receipt Date: 20130812
  Transmission Date: 20140515
  Serious: Yes (Hospitalization)
  Sender: FDA-Public Use
  Company Number: PHHY2013FR025695

PATIENT
  Age: 78 Year
  Sex: Female

DRUGS (14)
  1. VOLTARENE [Suspect]
     Dosage: 50 MG, TID
     Route: 048
     Dates: start: 20130111, end: 20130115
  2. APROVEL [Concomitant]
     Dosage: 150 MG, DAILY FOR LONG TIME
     Route: 048
  3. ARIXTRA [Concomitant]
     Dosage: 2.5 MG, DAILY
     Route: 058
     Dates: start: 201211
  4. CARDENSIEL [Concomitant]
     Dosage: 2.5 MG, DAILY FOR LONG TIME
     Route: 048
  5. CLINUTREN [Concomitant]
     Dosage: UNK UKN, UNK
  6. DAFALGAN [Concomitant]
     Dosage: 500 MG, 2 DF 3 TIMES AS NEEDED
     Route: 048
     Dates: start: 201211
  7. EUPANTOL [Concomitant]
     Dosage: 20 MG, DAILY FOR LONG TIME
     Route: 048
  8. GAVISCON [Concomitant]
     Dosage: 1 DF, FOR LONG TIME
     Route: 048
  9. KARDEGIC [Concomitant]
     Dosage: 75 MG, DAILY FOR LOMG TIME
     Route: 048
  10. LANTUS [Concomitant]
     Dosage: 32 IU/KG, DAILY FOR LONG TIME
     Route: 058
  11. NOVORAPID [Concomitant]
     Dosage: UNK UKN, UNK
     Route: 058
  12. TAHOR [Concomitant]
     Dosage: 10 MG, DAILY FOR LONG TIME
     Route: 048
  13. LASILIX [Concomitant]
     Dosage: 20 MG,  1 DF TWICE DAILY
     Route: 048
  14. TRIATEC [Concomitant]
     Dosage: 5 MG, DAILY FOR LONG TIME
     Route: 048

REACTIONS (2)
  - Cardiac failure [Recovered/Resolved]
  - Pulmonary oedema [Recovered/Resolved]
